FAERS Safety Report 5287637-5 (Version None)
Quarter: 2007Q1

REPORT INFORMATION
  Report Type: 
  Country: None (occurrence: None)
  Receive Date: 20070105
  Receipt Date: 20060612
  Transmission Date: 20070707
  Serious: No
  Sender: FDA-Public Use
  Company Number: 20060134

PATIENT
  Age: 29 Year
  Sex: Female
  Weight: 108.4097 kg

DRUGS (1)
  1. VENOFER [Suspect]
     Indication: IRON DEFICIENCY ANAEMIA
     Dosage: 300 MG IV QWEEK INTRAVENOUS DRIP
     Route: 041
     Dates: start: 20060608, end: 20060608

REACTIONS (4)
  - CHEST PAIN [None]
  - CHILLS [None]
  - FEELING HOT [None]
  - FLUSHING [None]
